FAERS Safety Report 8275526-3 (Version None)
Quarter: 2012Q2

REPORT INFORMATION
  Report Type: 
  Country: None (occurrence: None)
  Receive Date: 20120411
  Receipt Date: 20120403
  Transmission Date: 20120825
  Serious: Yes (Hospitalization)
  Sender: FDA-Public Use
  Company Number: US-BRISTOL-MYERS SQUIBB COMPANY-16501611

PATIENT
  Age: 14 Year
  Sex: Female

DRUGS (3)
  1. IRINOTECAN HCL [Suspect]
     Indication: ASTROCYTOMA
  2. CETUXIMAB [Suspect]
     Indication: ASTROCYTOMA
     Dates: start: 20120320, end: 20120327
  3. SODIUM CHLORIDE [Concomitant]
     Dates: start: 20120321

REACTIONS (1)
  - HYPONATRAEMIA [None]
